FAERS Safety Report 9506590 (Version 1)
Quarter: 2013Q3

REPORT INFORMATION
  Report Type: Spontaneous
  Country: US (occurrence: US)
  Receive Date: 20130906
  Receipt Date: 20130906
  Transmission Date: 20140515
  Serious: No
  Sender: FDA-Public Use
  Company Number: US-B.I. PHARMACEUTICALS,INC./RIDGEFIELD-2013-BI-26605BP

PATIENT
  Age: 83 Year
  Sex: Male

DRUGS (2)
  1. SPIRIVA [Suspect]
     Indication: CHRONIC OBSTRUCTIVE PULMONARY DISEASE
     Dosage: 18 MCG
     Route: 055
     Dates: start: 20130817
  2. MUCINEX [Concomitant]
     Indication: INCREASED UPPER AIRWAY SECRETION
     Dosage: 1200 MG
     Route: 048
     Dates: start: 201307

REACTIONS (1)
  - Dyspnoea [Recovered/Resolved]
